FAERS Safety Report 13815062 (Version 1)
Quarter: 2017Q3

REPORT INFORMATION
  Report Type: Spontaneous
  Country: GB (occurrence: GB)
  Receive Date: 20170731
  Receipt Date: 20170731
  Transmission Date: 20171127
  Serious: Yes (Disabling)
  Sender: FDA-Public Use
  Company Number: GB-TEVA-789945ACC

PATIENT
  Age: 73 Year
  Sex: Female

DRUGS (6)
  1. ASPIRIN. [Concomitant]
     Active Substance: ASPIRIN
     Dosage: 75 MILLIGRAM DAILY;
  2. FOLIC ACID. [Suspect]
     Active Substance: FOLIC ACID
     Dosage: 5 MILLIGRAM DAILY;
     Route: 048
  3. AMLODIPINE BESYLATE. [Suspect]
     Active Substance: AMLODIPINE BESYLATE
     Indication: HYPERTENSION
     Dosage: 5 MILLIGRAM DAILY;
     Route: 048
  4. PREDNISOLONE. [Concomitant]
     Active Substance: PREDNISOLONE
     Dosage: 60 MG PER DAY NOW DONE TO 20.
  5. NATECAL D3 [Concomitant]
     Active Substance: CALCIUM CARBONATE\CHOLECALCIFEROL
     Dosage: 600 MILLIGRAM DAILY;
  6. FERROUS GLUCONATE [Concomitant]
     Active Substance: FERROUS GLUCONATE
     Dosage: 600 MILLIGRAM DAILY;

REACTIONS (2)
  - Joint swelling [Not Recovered/Not Resolved]
  - Swelling [Not Recovered/Not Resolved]
